FAERS Safety Report 25526139 (Version 1)
Quarter: 2025Q3

REPORT INFORMATION
  Report Type: Spontaneous
  Country: US (occurrence: None)
  Receive Date: 20250707
  Receipt Date: 20250707
  Transmission Date: 20251021
  Serious: No
  Sender: FDA-CTU
  Company Number: None

PATIENT
  Age: 18 Year
  Sex: Male
  Weight: 82.35 kg

DRUGS (1)
  1. DIAZEPAM [Suspect]
     Active Substance: DIAZEPAM

REACTIONS (3)
  - Somnolence [None]
  - Balance disorder [None]
  - Job dissatisfaction [None]

NARRATIVE: CASE EVENT DATE: 20250707
